FAERS Safety Report 7523038-4 (Version None)
Quarter: 2011Q2

REPORT INFORMATION
  Report Type: 
  Country: None (occurrence: None)
  Receive Date: 20110603
  Receipt Date: 20110531
  Transmission Date: 20111010
  Serious: Yes (Death)
  Sender: FDA-Public Use
  Company Number: JP-PFIZER INC-2011068821

PATIENT
  Age: 15 Year
  Sex: Male
  Weight: 31 kg

DRUGS (22)
  1. SILDENAFIL CITRATE [Suspect]
     Dosage: 10 MG/DAY
     Route: 048
     Dates: start: 20080516, end: 20080519
  2. SILDENAFIL CITRATE [Suspect]
     Dosage: 20 MG/DAY
     Route: 048
     Dates: start: 20080523, end: 20080601
  3. TRACLEER [Concomitant]
     Indication: PULMONARY HYPERTENSION
     Dosage: UNK
     Dates: end: 20101121
  4. TRICHLORMETHIAZIDE [Concomitant]
     Indication: CARDIAC FAILURE
     Dosage: UNK
     Route: 048
     Dates: end: 20101121
  5. SILDENAFIL CITRATE [Suspect]
     Dosage: 15 MG/DAY
     Route: 048
     Dates: start: 20080520, end: 20080522
  6. SILDENAFIL CITRATE [Suspect]
     Dosage: 35 MG/DAY
     Route: 048
     Dates: start: 20080610, end: 20080617
  7. MAGNESIUM OXIDE [Concomitant]
     Indication: CONSTIPATION
     Dosage: UNK
     Route: 048
     Dates: end: 20101121
  8. ALDACTONE [Concomitant]
     Indication: CARDIAC FAILURE
     Dosage: UNK
     Dates: end: 20101121
  9. PIMOBENDAN [Concomitant]
     Indication: CARDIAC FAILURE
     Dosage: UNK
     Dates: end: 20101121
  10. FAMOTIDINE [Concomitant]
     Indication: GASTRIC ULCER
     Dosage: UNK
     Dates: end: 20101121
  11. LAXOBERON [Concomitant]
     Indication: CONSTIPATION
     Dosage: UNK
     Route: 048
     Dates: end: 20101121
  12. SOLDACTONE [Concomitant]
     Dosage: UNK
     Route: 042
     Dates: end: 20101121
  13. FESIN [Concomitant]
     Indication: ANAEMIA
     Dosage: UNK
     Route: 042
  14. LOXONIN [Concomitant]
     Indication: PAIN
     Dosage: UNK
     Route: 048
     Dates: start: 20100714, end: 20101121
  15. ENALAPRIL MALEATE [Concomitant]
     Indication: CARDIAC FAILURE
     Dosage: UNK
     Route: 048
     Dates: end: 20101121
  16. LASIX [Concomitant]
     Indication: CARDIAC FAILURE
     Dosage: UNK
     Route: 048
     Dates: end: 20101121
  17. ALBUMIN ^BEHRING^ [Concomitant]
     Indication: HYPOPROTEINAEMIA
     Dosage: UNK
     Route: 042
     Dates: start: 20100608
  18. SILDENAFIL CITRATE [Suspect]
     Dosage: 30 MG/DAY
     Route: 048
     Dates: start: 20080602, end: 20080609
  19. SILDENAFIL CITRATE [Suspect]
     Dosage: 40 MG/DAY
     Route: 048
     Dates: start: 20080618
  20. SILDENAFIL CITRATE [Suspect]
     Dosage: 5 MG/DAY
     Route: 048
     Dates: start: 20080513, end: 20080515
  21. DIGOSIN [Concomitant]
     Indication: CARDIAC FAILURE
     Dosage: UNK
     Dates: end: 20101121
  22. LASIX [Concomitant]
     Route: 042

REACTIONS (1)
  - CARDIAC FAILURE [None]
